FAERS Safety Report 7404294-X (Version None)
Quarter: 2011Q2

REPORT INFORMATION
  Report Type: 
  Country: None (occurrence: None)
  Receive Date: 20110408
  Receipt Date: 20110406
  Transmission Date: 20111010
  Serious: Yes (Other)
  Sender: FDA-Public Use
  Company Number: IT-ROXANE LABORATORIES, INC.-2011-RO-00461RO

PATIENT
  Age: 71 Year
  Sex: Female

DRUGS (5)
  1. LENALIDOMIDE [Suspect]
     Indication: DIFFUSE LARGE B-CELL LYMPHOMA RECURRENT
     Dosage: 25 MG
     Route: 048
  2. GRANULOCYTE COLONY-STIMULATING FACTOR [Suspect]
     Route: 058
  3. COTRIM [Suspect]
     Indication: ANTIFUNGAL PROPHYLAXIS
  4. DEXAMETHASONE [Suspect]
     Indication: DIFFUSE LARGE B-CELL LYMPHOMA RECURRENT
     Route: 048
  5. ASPIRIN [Suspect]
     Indication: THROMBOSIS PROPHYLAXIS
     Dosage: 100 MG

REACTIONS (2)
  - FATIGUE [None]
  - NEUTROPENIA [None]
